FAERS Safety Report 7372327-5 (Version None)
Quarter: 2011Q1

REPORT INFORMATION
  Report Type: 
  Country: None (occurrence: None)
  Receive Date: 20110324
  Receipt Date: 20110316
  Transmission Date: 20110831
  Serious: Yes (Other)
  Sender: FDA-Public Use
  Company Number: B0706074A

PATIENT
  Sex: Female

DRUGS (10)
  1. EFFERALGAN [Suspect]
     Indication: PAIN
     Route: 048
     Dates: start: 20100923, end: 20101025
  2. ACUPAN [Concomitant]
     Route: 065
     Dates: start: 20101011
  3. MYOLASTAN [Concomitant]
     Route: 048
     Dates: start: 20101025
  4. CONTRAMAL [Concomitant]
     Indication: PAIN
     Route: 048
     Dates: start: 20100929, end: 20101004
  5. TARDYFERON [Concomitant]
     Dosage: 80MG TWICE PER DAY
     Route: 048
  6. TOPALGIC ( FRANCE ) [Suspect]
     Indication: PAIN
     Route: 048
     Dates: start: 20101004, end: 20101101
  7. DAFALGAN [Concomitant]
     Route: 048
     Dates: start: 20101002
  8. NEXIUM [Concomitant]
     Dosage: 20MG PER DAY
     Route: 048
     Dates: start: 20101026
  9. ARIXTRA [Suspect]
     Indication: THROMBOSIS PROPHYLAXIS
     Dosage: 1INJ PER DAY
     Route: 058
     Dates: start: 20100916, end: 20101022
  10. BIPROFENID [Concomitant]
     Route: 048
     Dates: start: 20101026

REACTIONS (2)
  - NEUTROPENIA [None]
  - LEUKOPENIA [None]
